FAERS Safety Report 10470321 (Version 1)
Quarter: 2014Q3

REPORT INFORMATION
  Report Type: Spontaneous
  Country: FR (occurrence: FR)
  Receive Date: 20140923
  Receipt Date: 20140923
  Transmission Date: 20150326
  Serious: Yes (Hospitalization, Other)
  Sender: FDA-Public Use
  Company Number: FR-PFIZER INC-2014259166

PATIENT
  Age: 56 Year
  Sex: Male

DRUGS (4)
  1. ADVIL [Suspect]
     Active Substance: IBUPROFEN
     Indication: ASTHENIA
  2. SYMBICORT [Suspect]
     Active Substance: BUDESONIDE\FORMOTEROL FUMARATE DIHYDRATE
     Dosage: UNK
     Dates: start: 20130909
  3. KETEK [Concomitant]
     Active Substance: TELITHROMYCIN
     Indication: ANTIBIOTIC THERAPY
     Dosage: 2 DF, DAILY
     Dates: start: 20130909, end: 20130913
  4. ADVIL [Suspect]
     Active Substance: IBUPROFEN
     Indication: PYREXIA
     Dosage: UNK
     Route: 048
     Dates: start: 20130901, end: 20130908

REACTIONS (2)
  - Pneumonia [Recovered/Resolved]
  - Viral pericarditis [Unknown]

NARRATIVE: CASE EVENT DATE: 20130910
